FAERS Safety Report 4645412-6 (Version None)
Quarter: 2005Q2

REPORT INFORMATION
  Report Type: 
  Country: None (occurrence: None)
  Receive Date: 20050425
  Receipt Date: 20050413
  Transmission Date: 20051028
  Serious: Yes (Other)
  Sender: FDA-Public Use
  Company Number: 2005060072

PATIENT
  Age: 60 Year
  Sex: Male

DRUGS (3)
  1. VORICONAZOLE ORAL SUSPENSION (VORICONAZOLE) [Suspect]
     Indication: ILL-DEFINED DISORDER
     Dosage: 400 MG (200 MG, BID INTERVAL:  EVERY DAY), ORAL
     Route: 048
     Dates: start: 20050320, end: 20050322
  2. AMIKACIN [Concomitant]
  3. PIP/TAZO (PIPERACILLIN SODIUM, TAZOBACTAM SODIUM) [Concomitant]

REACTIONS (3)
  - ABASIA [None]
  - COORDINATION ABNORMAL [None]
  - VERTIGO [None]
